FAERS Safety Report 25707615 (Version 1)
Quarter: 2025Q3

REPORT INFORMATION
  Report Type: Spontaneous
  Country: EU (occurrence: EU)
  Receive Date: 20250820
  Receipt Date: 20250820
  Transmission Date: 20251020
  Serious: Yes (Hospitalization)
  Sender: MYLAN
  Company Number: None

PATIENT
  Age: 69 Year
  Sex: Female
  Weight: 59 kg

DRUGS (28)
  1. MIRTAZAPINE [Suspect]
     Active Substance: MIRTAZAPINE
     Indication: Depression
     Dosage: 30 MILLIGRAM, QD
     Dates: start: 20200630
  2. MIRTAZAPINE [Suspect]
     Active Substance: MIRTAZAPINE
     Dosage: 30 MILLIGRAM, QD
     Route: 048
     Dates: start: 20200630
  3. MIRTAZAPINE [Suspect]
     Active Substance: MIRTAZAPINE
     Dosage: 30 MILLIGRAM, QD
     Route: 048
     Dates: start: 20200630
  4. MIRTAZAPINE [Suspect]
     Active Substance: MIRTAZAPINE
     Dosage: 30 MILLIGRAM, QD
     Dates: start: 20200630
  5. LERCANIDIPINE [Suspect]
     Active Substance: LERCANIDIPINE
     Indication: Hypertension
     Dosage: 10 MILLIGRAM, QD
     Dates: start: 20151001
  6. LERCANIDIPINE [Suspect]
     Active Substance: LERCANIDIPINE
     Dosage: 10 MILLIGRAM, QD
     Route: 048
     Dates: start: 20151001
  7. LERCANIDIPINE [Suspect]
     Active Substance: LERCANIDIPINE
     Dosage: 10 MILLIGRAM, QD
     Route: 048
     Dates: start: 20151001
  8. LERCANIDIPINE [Suspect]
     Active Substance: LERCANIDIPINE
     Dosage: 10 MILLIGRAM, QD
     Dates: start: 20151001
  9. ZOPICLONE [Suspect]
     Active Substance: ZOPICLONE
     Indication: Sleep disorder
     Dosage: 7.5 MILLIGRAM, QD
     Dates: start: 20151001
  10. ZOPICLONE [Suspect]
     Active Substance: ZOPICLONE
     Dosage: 7.5 MILLIGRAM, QD
     Route: 048
     Dates: start: 20151001
  11. ZOPICLONE [Suspect]
     Active Substance: ZOPICLONE
     Dosage: 7.5 MILLIGRAM, QD
     Route: 048
     Dates: start: 20151001
  12. ZOPICLONE [Suspect]
     Active Substance: ZOPICLONE
     Dosage: 7.5 MILLIGRAM, QD
     Dates: start: 20151001
  13. OXAZEPAM [Suspect]
     Active Substance: OXAZEPAM
     Indication: Anxiety
     Dosage: 5 MILLIGRAM, Q8H
     Dates: start: 20151001
  14. OXAZEPAM [Suspect]
     Active Substance: OXAZEPAM
     Dosage: 5 MILLIGRAM, Q8H
     Route: 048
     Dates: start: 20151001
  15. OXAZEPAM [Suspect]
     Active Substance: OXAZEPAM
     Dosage: 5 MILLIGRAM, Q8H
     Route: 048
     Dates: start: 20151001
  16. OXAZEPAM [Suspect]
     Active Substance: OXAZEPAM
     Dosage: 5 MILLIGRAM, Q8H
     Dates: start: 20151001
  17. LORMETAZEPAM [Suspect]
     Active Substance: LORMETAZEPAM
     Indication: Sleep disorder
     Dosage: 4 MILLIGRAM, QD
     Dates: start: 20151001
  18. LORMETAZEPAM [Suspect]
     Active Substance: LORMETAZEPAM
     Dosage: 4 MILLIGRAM, QD
     Route: 048
     Dates: start: 20151001
  19. LORMETAZEPAM [Suspect]
     Active Substance: LORMETAZEPAM
     Dosage: 4 MILLIGRAM, QD
     Route: 048
     Dates: start: 20151001
  20. LORMETAZEPAM [Suspect]
     Active Substance: LORMETAZEPAM
     Dosage: 4 MILLIGRAM, QD
     Dates: start: 20151001
  21. ESOMEPRAZOLE [Concomitant]
     Active Substance: ESOMEPRAZOLE
     Indication: Gastrooesophageal reflux disease
     Dosage: 40 MILLIGRAM, QD
     Dates: start: 20151001
  22. ESOMEPRAZOLE [Concomitant]
     Active Substance: ESOMEPRAZOLE
     Dosage: 40 MILLIGRAM, QD
     Route: 048
     Dates: start: 20151001
  23. ESOMEPRAZOLE [Concomitant]
     Active Substance: ESOMEPRAZOLE
     Dosage: 40 MILLIGRAM, QD
     Route: 048
     Dates: start: 20151001
  24. ESOMEPRAZOLE [Concomitant]
     Active Substance: ESOMEPRAZOLE
     Dosage: 40 MILLIGRAM, QD
     Dates: start: 20151001
  25. LANTUS [Concomitant]
     Active Substance: INSULIN GLARGINE
     Indication: Insulin-requiring type 2 diabetes mellitus
     Dosage: 100 INTERNATIONAL UNIT, QD SOLUTION FOR INJECTION IN PRE-FILLED PEN
     Dates: start: 20151001
  26. LANTUS [Concomitant]
     Active Substance: INSULIN GLARGINE
     Dosage: 100 INTERNATIONAL UNIT, QD SOLUTION FOR INJECTION IN PRE-FILLED PEN
     Route: 048
     Dates: start: 20151001
  27. LANTUS [Concomitant]
     Active Substance: INSULIN GLARGINE
     Dosage: 100 INTERNATIONAL UNIT, QD SOLUTION FOR INJECTION IN PRE-FILLED PEN
     Route: 048
     Dates: start: 20151001
  28. LANTUS [Concomitant]
     Active Substance: INSULIN GLARGINE
     Dosage: 100 INTERNATIONAL UNIT, QD SOLUTION FOR INJECTION IN PRE-FILLED PEN
     Dates: start: 20151001

REACTIONS (2)
  - Fall [Recovering/Resolving]
  - Femoral neck fracture [Recovering/Resolving]

NARRATIVE: CASE EVENT DATE: 20220701
